FAERS Safety Report 8140539-9 (Version None)
Quarter: 2012Q1

REPORT INFORMATION
  Report Type: 
  Country: None (occurrence: None)
  Receive Date: 20120216
  Receipt Date: 20120213
  Transmission Date: 20120608
  Serious: Yes (Other)
  Sender: FDA-Public Use
  Company Number: VE-PFIZER INC-2012031576

PATIENT
  Age: 43 Year
  Sex: Male

DRUGS (2)
  1. LIPITOR [Suspect]
     Indication: MYOCARDIAL INFARCTION
  2. LIPITOR [Suspect]
     Indication: HYPERCHOLESTEROLAEMIA
     Dosage: UNK, ONCE DAILY
     Route: 048
     Dates: start: 20110826, end: 20110909

REACTIONS (2)
  - SKIN EXFOLIATION [None]
  - LIVER INJURY [None]
